FAERS Safety Report 23608400 (Version 2)
Quarter: 2024Q4

REPORT INFORMATION
  Report Type: Report from Study
  Country: CA (occurrence: CA)
  Receive Date: 20240307
  Receipt Date: 20241112
  Transmission Date: 20250114
  Serious: Yes (Hospitalization)
  Sender: GENMAB
  Company Number: CA-GENMAB-2024-00740

PATIENT
  Age: 56 Year
  Sex: Female

DRUGS (1)
  1. EPCORITAMAB [Suspect]
     Active Substance: EPCORITAMAB
     Indication: Diffuse large B-cell lymphoma
     Dosage: LAST ADMIN DATE : FEB 2024, FREQUENCY TEXT:  WEEKLY ON DAYS 1, 8 FREQUENCY: 15 AND 22
     Route: 058
     Dates: start: 20240208, end: 202402

REACTIONS (1)
  - Hospitalisation [Not Recovered/Not Resolved]

NARRATIVE: CASE EVENT DATE: 20240201
